FAERS Safety Report 5258904-6 (Version None)
Quarter: 2007Q1

REPORT INFORMATION
  Report Type: 
  Country: None (occurrence: None)
  Receive Date: 20070308
  Receipt Date: 20070302
  Transmission Date: 20070707
  Serious: Yes (Other)
  Sender: FDA-Public Use
  Company Number: US-GLAXOSMITHKLINE-A0641479A

PATIENT
  Age: 44 Year
  Sex: Male

DRUGS (2)
  1. COMMIT [Suspect]
     Dosage: 4MG THREE TIMES PER DAY
     Route: 002
     Dates: start: 20070228
  2. COMMIT [Suspect]
     Route: 002

REACTIONS (10)
  - AGGRESSION [None]
  - CRYING [None]
  - DEMENTIA [None]
  - DRUG WITHDRAWAL SYNDROME [None]
  - INTENTIONAL DRUG MISUSE [None]
  - IRRITABILITY [None]
  - MOOD ALTERED [None]
  - NICOTINE DEPENDENCE [None]
  - SCREAMING [None]
  - STRESS [None]
